FAERS Safety Report 10926858 (Version 3)
Quarter: 2015Q2

REPORT INFORMATION
  Report Type: Spontaneous
  Country: GB (occurrence: None)
  Receive Date: 20150316
  Receipt Date: 20150601
  Transmission Date: 20150821
  Serious: Yes (Disabling)
  Sender: FDA-Public Use
  Company Number: FK201501214

PATIENT
  Age: 74 Year
  Sex: Female

DRUGS (27)
  1. COCODAMOL [Concomitant]
     Active Substance: ACETAMINOPHEN\CODEINE PHOSPHATE
  2. NICORANDIL [Concomitant]
     Active Substance: NICORANDIL
  3. RAMIPRIL. [Concomitant]
     Active Substance: RAMIPRIL
  4. HYDROCORTISONE. [Concomitant]
     Active Substance: HYDROCORTISONE
  5. HERCEPTIN [Suspect]
     Active Substance: TRASTUZUMAB
     Indication: HER-2 POSITIVE BREAST CANCER
     Dosage: 8 MG/KG, 1 IN 1 TOTAL
     Route: 042
     Dates: start: 20131129, end: 20131129
  6. AMITRIPTYLINE [Concomitant]
     Active Substance: AMITRIPTYLINE
  7. LANSOPRAZOLE. [Concomitant]
     Active Substance: LANSOPRAZOLE
  8. CODEINE PHOSPHATE [Concomitant]
     Active Substance: CODEINE PHOSPHATE
  9. EURAX (CROTAMITON) [Concomitant]
  10. METOCLOPRAMIDE (METOCLOPRAMIDE) [Concomitant]
     Active Substance: METOCLOPRAMIDE
  11. HUMULIN (HUMAN MIXTARD) [Concomitant]
  12. COLOFAC (MEBEVERINE HYDROCHLORIDE) [Concomitant]
  13. ASPIRIN (ACETYLSALICYLIC ACID) [Concomitant]
     Active Substance: ASPIRIN
  14. PACLITAXEL (MANUFACTURER UNKNOWN) (PACLITAXEL) (PACLITAXEL) [Suspect]
     Active Substance: PACLITAXEL
     Indication: HER-2 POSITIVE BREAST CANCER
     Dosage: NOT OTHERWISE SPECIFIED
     Route: 042
     Dates: start: 20131129
  15. GLICLAZIDE [Concomitant]
     Active Substance: GLICLAZIDE
  16. CHLORPHENIRAMINE (CHLORPHENAMINE) [Concomitant]
  17. SANDO K (POTASSIUM CHLORIDE) [Concomitant]
     Active Substance: POTASSIUM CHLORIDE
  18. ATENOLOL. [Concomitant]
     Active Substance: ATENOLOL
  19. ROSUVASTATIN [Concomitant]
     Active Substance: ROSUVASTATIN
  20. RANITIDINE [Concomitant]
     Active Substance: RANITIDINE\RANITIDINE HYDROCHLORIDE
  21. PEPPERMINT OIL (MENTHA X PIPERITA OIL) [Concomitant]
  22. VICTOZA [Concomitant]
     Active Substance: LIRAGLUTIDE
  23. LOPERAMIDE [Concomitant]
     Active Substance: LOPERAMIDE
  24. PERTUZUMAB (PERTUZUMAB) (PERTUZUMAB) [Suspect]
     Active Substance: PERTUZUMAB
     Indication: HER-2 POSITIVE BREAST CANCER
     Dosage: 840 MG, 1 IN 1 TOTAL
     Route: 042
     Dates: start: 20131129, end: 20131129
  25. PIRITON (CHLORPHENAMINE MALEATE) [Concomitant]
  26. CYCLIZINE (CYCLIZINE) [Concomitant]
  27. DEXAMETHASONE (DEXAMETHASONE) [Concomitant]
     Active Substance: DEXAMETHASONE

REACTIONS (2)
  - Enteritis [None]
  - Crohn^s disease [None]

NARRATIVE: CASE EVENT DATE: 20150116
